FAERS Safety Report 5700057-1 (Version None)
Quarter: 2008Q2

REPORT INFORMATION
  Report Type: 
  Country: None (occurrence: None)
  Receive Date: 20080410
  Receipt Date: 20080403
  Transmission Date: 20081010
  Serious: Yes (Hospitalization, Other)
  Sender: FDA-Public Use
  Company Number: DE-TEVA-167832ISR

PATIENT
  Sex: Female

DRUGS (2)
  1. COPAXONE [Suspect]
     Indication: MULTIPLE SCLEROSIS
     Route: 058
     Dates: start: 19930101
  2. COPAXONE [Suspect]
     Route: 058
     Dates: start: 20070901

REACTIONS (4)
  - ENDOMETRIAL CANCER [None]
  - NECROSIS [None]
  - OVARIAN CANCER [None]
  - UTERINE CANCER [None]
